FAERS Safety Report 4477010-1 (Version None)
Quarter: 2004Q4

REPORT INFORMATION
  Report Type: 
  Country: None (occurrence: None)
  Receive Date: 20041013
  Receipt Date: 20040924
  Transmission Date: 20050328
  Serious: Yes (Other)
  Sender: FDA-Public Use
  Company Number: GBS040915650

PATIENT
  Age: 61 Year
  Sex: Female
  Weight: 78 kg

DRUGS (8)
  1. FLUOXETINE [Suspect]
     Indication: DEPRESSION
     Dosage: 20 MG
     Route: 048
     Dates: start: 20040802, end: 20040807
  2. LISINOPRIL [Concomitant]
  3. ASPIRIN [Concomitant]
  4. CLOPIDOGREL [Concomitant]
  5. METOPROLOL [Concomitant]
  6. BENDROFLUMETHIAZIDE [Concomitant]
  7. ATORVASTATIN CALCIUM [Concomitant]
  8. CO-TRIMOXAZOLE [Concomitant]

REACTIONS (8)
  - ANOREXIA [None]
  - ANXIETY [None]
  - EMOTIONAL DISTRESS [None]
  - FEELING ABNORMAL [None]
  - FLUID INTAKE REDUCED [None]
  - INSOMNIA [None]
  - NAUSEA [None]
  - PANIC ATTACK [None]
